FAERS Safety Report 9984113 (Version 1)
Quarter: 2014Q1

REPORT INFORMATION
  Report Type: Report from Study
  Country: US (occurrence: US)
  Receive Date: 20140307
  Receipt Date: 20140307
  Transmission Date: 20141002
  Serious: No
  Sender: FDA-Public Use
  Company Number: US-ABBVIE-13P-163-1183447-00

PATIENT
  Age: 55 Year
  Sex: Male
  Weight: 69.46 kg

DRUGS (4)
  1. HUMIRA [Suspect]
     Indication: CROHN^S DISEASE
     Dosage: LOADING DOSE
     Dates: start: 20131218, end: 20131218
  2. HUMIRA [Suspect]
  3. LOMOTIL [Concomitant]
     Indication: DIARRHOEA
  4. PRILOSEC [Concomitant]
     Indication: GASTROOESOPHAGEAL REFLUX DISEASE

REACTIONS (6)
  - Decreased appetite [Not Recovered/Not Resolved]
  - Asthenia [Not Recovered/Not Resolved]
  - Chills [Not Recovered/Not Resolved]
  - Pallor [Not Recovered/Not Resolved]
  - Anxiety [Not Recovered/Not Resolved]
  - Yellow skin [Not Recovered/Not Resolved]
